FAERS Safety Report 24674710 (Version 5)
Quarter: 2024Q4

REPORT INFORMATION
  Report Type: Spontaneous
  Country: FR (occurrence: FR)
  Receive Date: 20241128
  Receipt Date: 20241218
  Transmission Date: 20250114
  Serious: Yes (Other)
  Sender: SANOFI AVENTIS
  Company Number: FR-SANOFI-02276285

PATIENT
  Age: 84 Year
  Sex: Female
  Weight: 63 kg

DRUGS (5)
  1. RIFAMPIN [Suspect]
     Active Substance: RIFAMPIN
     Indication: Atypical mycobacterial infection
     Dosage: 2 DF, QD (IN THE EVENING BEFORE BEDTIME)
  2. RIFAMPIN [Suspect]
     Active Substance: RIFAMPIN
     Indication: Pneumonia bacterial
  3. LAMOTRIGINE [Suspect]
     Active Substance: LAMOTRIGINE
     Indication: Epilepsy
     Dosage: UNK
     Route: 065
  4. OXYGEN [Concomitant]
     Active Substance: OXYGEN
     Indication: Chronic obstructive pulmonary disease
     Dosage: UNK
  5. AZITHROMYCIN [Concomitant]
     Active Substance: AZITHROMYCIN

REACTIONS (2)
  - Hallucination, visual [Recovered/Resolved]
  - Hallucination [Recovered/Resolved]
